FAERS Safety Report 6765085-6 (Version None)
Quarter: 2010Q2

REPORT INFORMATION
  Report Type: 
  Country: None (occurrence: None)
  Receive Date: 20100609
  Receipt Date: 20100609
  Transmission Date: 20101027
  Serious: Yes (Hospitalization)
  Sender: FDA-Public Use
  Company Number: None

PATIENT
  Sex: Female
  Weight: 72.4 kg

DRUGS (17)
  1. SORAFENIB 200MG BAYER [Suspect]
     Indication: BREAST CANCER METASTATIC
     Dosage: 2 TABLETS DAILY PO
     Route: 048
     Dates: start: 20100423, end: 20100427
  2. SORAFENIB 200MG BAYER [Suspect]
     Indication: BREAST CANCER METASTATIC
     Dosage: 2 TABLETS DAILY PO
     Route: 048
     Dates: start: 20100505, end: 20100604
  3. DILTIAZEM [Concomitant]
  4. SINGULAIR [Concomitant]
  5. ALBUTEROL [Concomitant]
  6. PROCHLORPERAZINE [Concomitant]
  7. ONDANSETRON [Concomitant]
  8. FERROUS SULFATE TAB [Concomitant]
  9. ZOLPIDEN [Concomitant]
  10. ESCITALOPRAM [Concomitant]
  11. IBUPROFEN [Concomitant]
  12. DILAUDED [Concomitant]
  13. DYAZINE [Concomitant]
  14. RESTORIL [Concomitant]
  15. DESVENLAFAXINE [Concomitant]
  16. DOCUSATE SODIUM [Concomitant]
  17. ESOMEPRAZOLE [Concomitant]

REACTIONS (6)
  - ASTHENIA [None]
  - BLOOD POTASSIUM DECREASED [None]
  - DEHYDRATION [None]
  - DIARRHOEA [None]
  - DIZZINESS [None]
  - NAUSEA [None]
